FAERS Safety Report 4408567-4 (Version None)
Quarter: 2004Q3

REPORT INFORMATION
  Report Type: 
  Country: None (occurrence: None)
  Receive Date: 20040726
  Receipt Date: 20040726
  Transmission Date: 20050211
  Serious: No
  Sender: FDA-Public Use
  Company Number: None

PATIENT
  Age: 66 Year
  Sex: Male

DRUGS (2)
  1. DILANTIN [Suspect]
     Indication: CONVULSION PROPHYLAXIS
     Dosage: 100 MG PO TID
     Route: 048
     Dates: start: 20040607, end: 20040608
  2. DILANTIN [Suspect]
     Indication: CONVULSION PROPHYLAXIS
     Dosage: 150 MG PO TID
     Route: 048
     Dates: start: 20040608, end: 20040619

REACTIONS (2)
  - PLATELET COUNT DECREASED [None]
  - WHITE BLOOD CELL COUNT DECREASED [None]
